FAERS Safety Report 4794814-6 (Version None)
Quarter: 2005Q3

REPORT INFORMATION
  Report Type: 
  Country: None (occurrence: None)
  Receive Date: 20050914
  Receipt Date: 20041005
  Transmission Date: 20060218
  Serious: Yes (Hospitalization)
  Sender: FDA-Public Use
  Company Number: 163-20785-04100161

PATIENT
  Age: 49 Year
  Sex: Female
  Weight: 112.5 kg

DRUGS (2)
  1. THALOMID [Suspect]
     Indication: RENAL CANCER METASTATIC
     Dosage: 200 MG, DAILY, ORAL
     Route: 048
     Dates: start: 20040301, end: 20041101
  2. CATAPRES [Concomitant]

REACTIONS (7)
  - BACK PAIN [None]
  - DEHYDRATION [None]
  - DISEASE PROGRESSION [None]
  - HAEMOGLOBIN DECREASED [None]
  - NAUSEA [None]
  - ORTHOSTATIC HYPOTENSION [None]
  - VOMITING [None]
